FAERS Safety Report 4661583-X (Version None)
Quarter: 2005Q2

REPORT INFORMATION
  Report Type: 
  Country: None (occurrence: None)
  Receive Date: 20050511
  Receipt Date: 20050511
  Transmission Date: 20051028
  Serious: Yes (Hospitalization)
  Sender: FDA-Public Use
  Company Number: None

PATIENT
  Age: 70 Year
  Sex: Male

DRUGS (7)
  1. METHADONE [Suspect]
     Indication: PAIN
     Dosage: 10 MG Q 12 H
     Dates: start: 20050101
  2. MIRTAZAPINE [Suspect]
     Indication: AFFECTIVE DISORDER
     Dosage: 30 MG QHS
     Dates: start: 20050218
  3. ZITHROMAX [Concomitant]
  4. GUAIFENESIN [Concomitant]
  5. LISINOPRIL [Concomitant]
  6. METOPROLOL [Concomitant]
  7. ZOCOR [Concomitant]

REACTIONS (2)
  - DELIRIUM [None]
  - HALLUCINATION [None]
